FAERS Safety Report 7616678-5 (Version None)
Quarter: 2011Q3

REPORT INFORMATION
  Report Type: 
  Country: None (occurrence: None)
  Receive Date: 20110717
  Receipt Date: 20110705
  Transmission Date: 20111222
  Serious: Yes (Hospitalization)
  Sender: FDA-Public Use
  Company Number: PHHY2011US59983

PATIENT
  Sex: Female

DRUGS (1)
  1. EXJADE [Suspect]
     Indication: MAGNESIUM METABOLISM DISORDER
     Dosage: 1000 MG, QD
     Route: 048
     Dates: start: 20110413, end: 20110705

REACTIONS (2)
  - HIP FRACTURE [None]
  - FALL [None]
